FAERS Safety Report 8227822-3 (Version None)
Quarter: 2012Q1

REPORT INFORMATION
  Report Type: 
  Country: None (occurrence: None)
  Receive Date: 20120322
  Receipt Date: 20120313
  Transmission Date: 20120608
  Serious: Yes (Hospitalization)
  Sender: FDA-Public Use
  Company Number: US-AMGEN-USASP2012016621

PATIENT
  Age: 71 Year
  Sex: Male

DRUGS (22)
  1. ARANESP [Suspect]
     Dosage: 25 MUG, UNK
     Dates: start: 20120310
  2. FOLIC ACID [Concomitant]
     Dosage: UNK
  3. LEXAPRO [Concomitant]
     Dosage: UNK
  4. LIPITOR [Concomitant]
     Dosage: 20 MG, UNK
  5. PHOSLO [Concomitant]
     Dosage: UNK
  6. ARANESP [Suspect]
     Indication: RENAL FAILURE CHRONIC
     Dosage: 50 MUG, 3 TIMES/WK
  7. RENVELA [Concomitant]
     Dosage: 3 MG, QD
  8. FOLIC ACID [Concomitant]
     Dosage: 1 MG, UNK
  9. LANTUS [Concomitant]
     Dosage: 25 IU, QHS
  10. LASIX [Concomitant]
     Dosage: UNK
  11. ASPIRIN [Concomitant]
     Dosage: 81 MG, UNK
  12. RENVELA [Concomitant]
     Dosage: 800 MG, TID
  13. ASPIRIN [Concomitant]
     Dosage: UNK
  14. PLAVIX [Concomitant]
     Dosage: UNK
  15. LIPITOR [Concomitant]
     Dosage: UNK
  16. COREG [Concomitant]
     Dosage: UNK
  17. COREG [Concomitant]
     Dosage: 3.125 MG, UNK
  18. LISINOPRIL [Concomitant]
     Dosage: 10 MG, UNK
  19. LISINOPRIL [Concomitant]
     Dosage: 20 MG, UNK
  20. LEXAPRO [Concomitant]
     Dosage: 10 MG, UNK
  21. PLAVIX [Concomitant]
     Dosage: 75 MG, UNK
  22. HEPARIN [Concomitant]
     Dosage: UNK
     Route: 058

REACTIONS (7)
  - HAEMORRHAGE [None]
  - PNEUMONIA [None]
  - HIP FRACTURE [None]
  - DYSPNOEA [None]
  - TRANSFERRIN SATURATION DECREASED [None]
  - SEPSIS [None]
  - FALL [None]
